FAERS Safety Report 19656710 (Version 1)
Quarter: 2021Q3

REPORT INFORMATION
  Report Type: Spontaneous
  Country: CA (occurrence: CA)
  Receive Date: 20210804
  Receipt Date: 20210804
  Transmission Date: 20211014
  Serious: Yes (Life-Threatening, Other)
  Sender: FDA-Public Use
  Company Number: CA-009507513-2108CAN000361

PATIENT
  Age: 41 Year
  Sex: Female

DRUGS (2)
  1. BRIDION [Suspect]
     Active Substance: SUGAMMADEX
  2. BRIDION [Suspect]
     Active Substance: SUGAMMADEX

REACTIONS (1)
  - Paralysis [Unknown]
